FAERS Safety Report 11391556 (Version 1)
Quarter: 2015Q3

REPORT INFORMATION
  Report Type: Report from Study
  Country: US (occurrence: US)
  Receive Date: 20150818
  Receipt Date: 20150818
  Transmission Date: 20151125
  Serious: Yes (Hospitalization, Other)
  Sender: FDA-Public Use
  Company Number: US-EISAI MEDICAL RESEARCH-E7080-00999-CLI-US

PATIENT
  Age: 79 Year
  Sex: Male
  Weight: 98 kg

DRUGS (3)
  1. LENVATINIB [Suspect]
     Active Substance: LENVATINIB
     Route: 048
     Dates: start: 20131107, end: 20131109
  2. LENVATINIB [Suspect]
     Active Substance: LENVATINIB
     Indication: RENAL CANCER METASTATIC
     Route: 048
     Dates: start: 20120703, end: 20121001
  3. LENVATINIB [Suspect]
     Active Substance: LENVATINIB
     Route: 048
     Dates: start: 20121005, end: 20131027

REACTIONS (3)
  - Acute myocardial infarction [Recovered/Resolved]
  - Lipase increased [Recovered/Resolved]
  - Parotitis [Recovered/Resolved]

NARRATIVE: CASE EVENT DATE: 20120925
